FAERS Safety Report 6177509-6 (Version None)
Quarter: 2009Q2

REPORT INFORMATION
  Report Type: 
  Country: None (occurrence: None)
  Receive Date: 20090504
  Receipt Date: 20090427
  Transmission Date: 20091009
  Serious: Yes (Other)
  Sender: FDA-Public Use
  Company Number: DE-B.I. PHARMACEUTICALS,INC./RIDGEFIELD-2009-DE-03405DE

PATIENT
  Sex: Male
  Weight: 96 kg

DRUGS (2)
  1. MICARDIS [Suspect]
     Dosage: 720MG
     Route: 048
  2. DIPIPERON TABLETTEN 40 [Suspect]
     Dosage: 960MG
     Route: 048

REACTIONS (4)
  - DRUG ABUSE [None]
  - HYPOTENSION [None]
  - OVERDOSE [None]
  - SUICIDE ATTEMPT [None]
